FAERS Safety Report 24842947 (Version 1)
Quarter: 2025Q1

REPORT INFORMATION
  Report Type: Report from Study
  Country: US (occurrence: US)
  Receive Date: 20250115
  Receipt Date: 20250115
  Transmission Date: 20250408
  Serious: Yes (Other)
  Sender: HRA PHARMA
  Company Number: US-ORG100014127-2024000060

PATIENT
  Age: 70 Year
  Sex: Female

DRUGS (19)
  1. LYSODREN [Suspect]
     Active Substance: MITOTANE
     Indication: Adrenal gland cancer
     Dosage: 1 TABLET THREE TIME DAIL
     Route: 048
     Dates: start: 20230606
  2. albuterol nebulizer 1.25/3mg [Concomitant]
     Indication: Product used for unknown indication
  3. aleve capsule 220mg [Concomitant]
     Indication: Product used for unknown indication
  4. ASPIRIN LOW TAB 81MG EC [Concomitant]
     Indication: Product used for unknown indication
  5. cefdinir capsule 300mg [Concomitant]
     Indication: Product used for unknown indication
  6. ESCITALOPRAM TAB 20MG/80 MG [Concomitant]
     Indication: Product used for unknown indication
  7. FLUTICASONE [Concomitant]
     Active Substance: FLUTICASONE
     Indication: Product used for unknown indication
  8. Kevzara injection 150/1.14 [Concomitant]
     Indication: Product used for unknown indication
  9. Lansoprazole capsule 30mg DR [Concomitant]
     Indication: Product used for unknown indication
  10. pantoprazole 40mg tablet DR [Concomitant]
     Indication: Product used for unknown indication
  11. Reclast injection 5/100ml [Concomitant]
     Indication: Product used for unknown indication
  12. Trelegy aerosol 100mcg [Concomitant]
     Indication: Product used for unknown indication
  13. Vitamin B1 Tablet 100mg [Concomitant]
     Indication: Product used for unknown indication
  14. vitamin D3 400 unit [Concomitant]
     Indication: Product used for unknown indication
  15. CORTISONE [Concomitant]
     Active Substance: CORTISONE
     Indication: Product used for unknown indication
  16. ondansetron tablet 4mg [Concomitant]
     Indication: Product used for unknown indication
  17. Promethazine tablet 25mg [Concomitant]
     Indication: Product used for unknown indication
  18. ventolin hfa aerosol [Concomitant]
     Indication: Product used for unknown indication
  19. Wixela Inhub aerosol 100/50 [Concomitant]
     Indication: Product used for unknown indication

REACTIONS (4)
  - Malignant neoplasm progression [Unknown]
  - Hyperhidrosis [Not Recovered/Not Resolved]
  - Dehydration [Not Recovered/Not Resolved]
  - Night sweats [Not Recovered/Not Resolved]

NARRATIVE: CASE EVENT DATE: 20240301
